FAERS Safety Report 5878308-2 (Version None)
Quarter: 2008Q3

REPORT INFORMATION
  Report Type: 
  Country: None (occurrence: None)
  Receive Date: 20080911
  Receipt Date: 20080901
  Transmission Date: 20090109
  Serious: Yes (Other)
  Sender: FDA-Public Use
  Company Number: AU-PFIZER INC-2008073448

PATIENT
  Age: 80 Year
  Sex: Male

DRUGS (1)
  1. VIAGRA [Suspect]
     Indication: ERECTILE DYSFUNCTION
     Dates: start: 20010401

REACTIONS (5)
  - HOMICIDAL IDEATION [None]
  - LIBIDO INCREASED [None]
  - PHYSICAL ABUSE [None]
  - PSYCHOLOGICAL ABUSE [None]
  - SEXUAL ABUSE [None]
